FAERS Safety Report 8820444 (Version 1)
Quarter: 2012Q4

REPORT INFORMATION
  Report Type: 
  Country: US (occurrence: US)
  Receive Date: 20121002
  Receipt Date: 20121002
  Transmission Date: 20130627
  Serious: No
  Sender: FDA-Public Use
  Company Number: US-009507513-1209USA011125

PATIENT
  Sex: Male

DRUGS (7)
  1. VICTRELIS [Suspect]
     Dosage: 800 mg, tid
     Route: 048
     Dates: start: 201207
  2. PEGASYS [Suspect]
  3. RIBASPHERE [Suspect]
  4. ATENOLOL [Concomitant]
  5. HYDROCHLOROTHIAZIDE [Concomitant]
  6. CINNAMON [Concomitant]
  7. VITAMINS (UNSPECIFIED) [Concomitant]

REACTIONS (2)
  - Dysgeusia [Not Recovered/Not Resolved]
  - Nausea [Not Recovered/Not Resolved]
